FAERS Safety Report 19195938 (Version 1)
Quarter: 2021Q2

REPORT INFORMATION
  Report Type: Spontaneous
  Country: CN (occurrence: CN)
  Receive Date: 20210429
  Receipt Date: 20210429
  Transmission Date: 20210717
  Serious: Yes (Other)
  Sender: FDA-Public Use
  Company Number: CN-ROCHE-2818134

PATIENT
  Age: 55 Year

DRUGS (19)
  1. LENALIDOMIDE [Concomitant]
     Active Substance: LENALIDOMIDE
     Indication: B-CELL LYMPHOMA
     Dosage: R2?CHOP
  2. MABTHERA [Suspect]
     Active Substance: RITUXIMAB
     Dosage: R2?B
     Route: 065
  3. THALIDOMIDE [Concomitant]
     Active Substance: THALIDOMIDE
     Indication: B-CELL LYMPHOMA
  4. MABTHERA [Suspect]
     Active Substance: RITUXIMAB
     Dosage: R2?CHOP
     Route: 065
  5. DEXAMETHASONE. [Concomitant]
     Active Substance: DEXAMETHASONE
     Dosage: R2?CHOP
  6. CYCLOPHOSPHAMIDE. [Concomitant]
     Active Substance: CYCLOPHOSPHAMIDE
     Dosage: 1.2 UNIT NOT REPORTED, R2?CHOP
  7. MABTHERA [Suspect]
     Active Substance: RITUXIMAB
     Dosage: R?B
     Route: 065
  8. VINORELBINE [Concomitant]
     Active Substance: VINORELBINE TARTRATE
     Indication: B-CELL LYMPHOMA
     Dosage: R?CHOP
  9. LENALIDOMIDE [Concomitant]
     Active Substance: LENALIDOMIDE
     Dosage: R2?B
  10. BENDAMUSTINE [Concomitant]
     Active Substance: BENDAMUSTINE
     Dosage: R?B
  11. MABTHERA [Suspect]
     Active Substance: RITUXIMAB
     Indication: B-CELL LYMPHOMA
     Dosage: R?CHOP
     Route: 065
  12. MABTHERA [Suspect]
     Active Substance: RITUXIMAB
     Route: 065
  13. BENDAMUSTINE [Concomitant]
     Active Substance: BENDAMUSTINE
     Indication: B-CELL LYMPHOMA
     Dosage: R2?B
  14. DEXAMETHASONE. [Concomitant]
     Active Substance: DEXAMETHASONE
     Indication: B-CELL LYMPHOMA
  15. VINORELBINE [Concomitant]
     Active Substance: VINORELBINE TARTRATE
     Dosage: R2?CHOP
  16. DOXORUBICIN [Concomitant]
     Active Substance: DOXORUBICIN
     Dosage: R2?CHOP
  17. DEXAMETHASONE. [Concomitant]
     Active Substance: DEXAMETHASONE
     Dosage: R?CHOP
  18. CYCLOPHOSPHAMIDE. [Concomitant]
     Active Substance: CYCLOPHOSPHAMIDE
     Indication: B-CELL LYMPHOMA
     Dosage: 1.2 UNIT NOT REPORTED, R?CHOP
  19. DOXORUBICIN [Concomitant]
     Active Substance: DOXORUBICIN
     Indication: B-CELL LYMPHOMA
     Dosage: R?CHOP

REACTIONS (5)
  - Haemosiderosis [Unknown]
  - Myelosuppression [Unknown]
  - White blood cell count decreased [Unknown]
  - Infection [Unknown]
  - Splenic infarction [Unknown]
